FAERS Safety Report 7929159-6 (Version None)
Quarter: 2011Q4

REPORT INFORMATION
  Report Type: 
  Country: None (occurrence: None)
  Receive Date: 20111120
  Receipt Date: 20111110
  Transmission Date: 20120403
  Serious: Yes (Death)
  Sender: FDA-Public Use
  Company Number: DK-ELI_LILLY_AND_COMPANY-DK201111004049

PATIENT
  Sex: Female
  Weight: 58 kg

DRUGS (1)
  1. FORTEO [Suspect]
     Dosage: UNK
     Dates: start: 20111029

REACTIONS (1)
  - CEREBROVASCULAR ACCIDENT [None]
